FAERS Safety Report 17555622 (Version 1)
Quarter: 2020Q3

REPORT INFORMATION
  Report Type: Spontaneous
  Country: US (occurrence: US)
  Receive Date: 20200310
  Receipt Date: 20200310
  Transmission Date: 20201104
  Serious: No
  Sender: FDA-Public Use
  Company Number: None

PATIENT

DRUGS (12)
  1. MORPHINE [Suspect]
     Active Substance: MORPHINE
  2. CLOPIDOGREL [Suspect]
     Active Substance: CLOPIDOGREL BISULFATE
  3. FUROSEMIDE. [Suspect]
     Active Substance: FUROSEMIDE
  4. FERROUS SULFATE. [Suspect]
     Active Substance: FERROUS SULFATE
  5. ALPRAZOLAM. [Suspect]
     Active Substance: ALPRAZOLAM
  6. CARVEDILOL. [Suspect]
     Active Substance: CARVEDILOL
  7. ESCITALOPRAM [Suspect]
     Active Substance: ESCITALOPRAM OXALATE
  8. AMLODIPINE [Suspect]
     Active Substance: AMLODIPINE BESYLATE
  9. DILTIAZEM. [Suspect]
     Active Substance: DILTIAZEM
  10. OXYCODONE [Suspect]
     Active Substance: OXYCODONE
  11. LISINOPRIL. [Suspect]
     Active Substance: LISINOPRIL
  12. LIPITOR [Suspect]
     Active Substance: ATORVASTATIN CALCIUM

REACTIONS (1)
  - Product dispensing error [None]

NARRATIVE: CASE EVENT DATE: 2019
